FAERS Safety Report 5810247-5 (Version None)
Quarter: 2008Q3

REPORT INFORMATION
  Report Type: 
  Country: None (occurrence: None)
  Receive Date: 20080715
  Receipt Date: 20080118
  Transmission Date: 20090109
  Serious: Yes (Other)
  Sender: FDA-Public Use
  Company Number: A0701688A

PATIENT
  Age: 19 Year
  Sex: Male
  Weight: 68.2 kg

DRUGS (2)
  1. IMITREX [Suspect]
     Indication: MIGRAINE
     Dosage: 100MG AS REQUIRED
     Route: 048
     Dates: start: 20080102, end: 20080102
  2. NO CONCURRENT MEDICATION [Concomitant]

REACTIONS (1)
  - PARAESTHESIA [None]
